FAERS Safety Report 14567912 (Version 1)
Quarter: 2018Q1

REPORT INFORMATION
  Report Type: Spontaneous
  Country: US (occurrence: US)
  Receive Date: 20180223
  Receipt Date: 20180223
  Transmission Date: 20180509
  Serious: Yes (Life-Threatening, Hospitalization, Other)
  Sender: FDA-Public Use
  Company Number: US-AMGEN-USASP2018024936

PATIENT
  Age: 21 Year
  Sex: Male

DRUGS (2)
  1. BLINCYTO [Suspect]
     Active Substance: BLINATUMOMAB
     Dosage: 33 MCG, QD
     Route: 065
     Dates: start: 201802, end: 201802
  2. BLINCYTO [Suspect]
     Active Substance: BLINATUMOMAB
     Indication: ACUTE LYMPHOCYTIC LEUKAEMIA
     Dosage: 15 MUG/M2, UNK
     Route: 065
     Dates: start: 20180215

REACTIONS (4)
  - Off label use [Unknown]
  - Pyrexia [Recovered/Resolved]
  - Loss of consciousness [Unknown]
  - Capillary leak syndrome [Recovered/Resolved]

NARRATIVE: CASE EVENT DATE: 201802
